FAERS Safety Report 6814877-3 (Version None)
Quarter: 2010Q3

REPORT INFORMATION
  Report Type: 
  Country: None (occurrence: None)
  Receive Date: 20100702
  Receipt Date: 20100623
  Transmission Date: 20110219
  Serious: Yes (Other)
  Sender: FDA-Public Use
  Company Number: AU-MILLENNIUM PHARMACEUTICALS, INC.-2010-03170

PATIENT

DRUGS (4)
  1. VELCADE [Suspect]
     Indication: MULTIPLE MYELOMA
     Dosage: 2.3 MG, UNK
     Route: 042
  2. VELCADE [Suspect]
     Dosage: 2.6 UNK, UNK
     Route: 042
     Dates: start: 20100615
  3. DEXAMETHASONE [Concomitant]
     Indication: MULTIPLE MYELOMA
     Dosage: 20 MG, UNK
     Route: 048
     Dates: start: 20100615
  4. CLEXANE [Concomitant]
     Indication: INJECTION SITE THROMBOSIS

REACTIONS (1)
  - INJECTION SITE THROMBOSIS [None]
